FAERS Safety Report 6120193-8 (Version None)
Quarter: 2009Q1

REPORT INFORMATION
  Report Type: 
  Country: None (occurrence: None)
  Receive Date: 20090316
  Receipt Date: 20090226
  Transmission Date: 20090719
  Serious: No
  Sender: FDA-Public Use
  Company Number: US-ABBOTT-09P-163-0559980-00

PATIENT
  Sex: Female

DRUGS (3)
  1. TRILIPIX [Suspect]
     Indication: BLOOD CHOLESTEROL INCREASED
     Dates: start: 20090223
  2. AMBIEN [Concomitant]
     Indication: INSOMNIA
  3. CRESTOR [Concomitant]
     Indication: BLOOD CHOLESTEROL

REACTIONS (1)
  - INSOMNIA [None]
